FAERS Safety Report 6727722-1 (Version None)
Quarter: 2010Q2

REPORT INFORMATION
  Report Type: 
  Country: None (occurrence: None)
  Receive Date: 20100514
  Receipt Date: 20100514
  Transmission Date: 20101027
  Serious: Yes (Other)
  Sender: FDA-Public Use
  Company Number: None

PATIENT
  Age: 38 Year
  Sex: Female
  Weight: 56.6996 kg

DRUGS (1)
  1. BOTOX [Suspect]
     Indication: SKIN COSMETIC PROCEDURE
     Dosage: 30 UNITS IM
     Route: 030
     Dates: start: 20091216, end: 20091216

REACTIONS (3)
  - EYE PAIN [None]
  - EYELID PTOSIS [None]
  - PERIORBITAL FAT HERNIATION [None]
